FAERS Safety Report 8818085 (Version 1)
Quarter: 2012Q4

REPORT INFORMATION
  Report Type: 
  Country: US (occurrence: US)
  Receive Date: 20121001
  Receipt Date: 20121001
  Transmission Date: 20130627
  Serious: No
  Sender: FDA-Public Use
  Company Number: US-ASTRAZENECA-2012SE71516

PATIENT

DRUGS (3)
  1. NEXIUM [Suspect]
     Indication: GASTROOESOPHAGEAL REFLUX DISEASE
     Route: 048
  2. ACIPHEX [Suspect]
     Route: 065
  3. ACIPHEX [Suspect]
     Route: 065

REACTIONS (13)
  - Body height decreased [Unknown]
  - Gastric disorder [Unknown]
  - Crying [Unknown]
  - Oesophageal disorder [Unknown]
  - Aphagia [Unknown]
  - Dysphagia [Unknown]
  - Chest discomfort [Unknown]
  - Haematochezia [Unknown]
  - Pain [Unknown]
  - Chest pain [Unknown]
  - Abdominal discomfort [Unknown]
  - Abdominal discomfort [Unknown]
  - Drug ineffective [Unknown]
